FAERS Safety Report 8504312-1 (Version None)
Quarter: 2012Q3

REPORT INFORMATION
  Report Type: 
  Country: None (occurrence: None)
  Receive Date: 20120711
  Receipt Date: 20120702
  Transmission Date: 20120928
  Serious: Yes (Hospitalization)
  Sender: FDA-Public Use
  Company Number: GB-ABBOTT-12P-167-0944520-00

PATIENT
  Age: 25 Year
  Sex: Female

DRUGS (3)
  1. KALETRA [Suspect]
     Indication: HIV INFECTION
     Route: 048
     Dates: start: 20120305, end: 20120319
  2. EPZICOM [Concomitant]
     Indication: HIV INFECTION
     Dosage: DAILY DOSE=1 TAB
     Route: 048
     Dates: start: 20120305, end: 20120319
  3. COMBIVIR [Concomitant]
     Indication: HIV INFECTION
     Dosage: DAILY DOSE= 2 TAB
     Route: 048
     Dates: start: 20120319

REACTIONS (3)
  - CYTOLYTIC HEPATITIS [None]
  - ASPARTATE AMINOTRANSFERASE INCREASED [None]
  - ALANINE AMINOTRANSFERASE INCREASED [None]
